APPROVED DRUG PRODUCT: THIOTEPA
Active Ingredient: THIOTEPA
Strength: 15MG/VIAL
Dosage Form/Route: INJECTABLE;INJECTION
Application: N011683 | Product #001
Applicant: IMMUNEX CORP
Approved: Approved Prior to Jan 1, 1982 | RLD: No | RS: No | Type: DISCN